FAERS Safety Report 6978597-7 (Version None)
Quarter: 2010Q3

REPORT INFORMATION
  Report Type: 
  Country: None (occurrence: None)
  Receive Date: 20100913
  Receipt Date: 20100901
  Transmission Date: 20110219
  Serious: Yes (Other)
  Sender: FDA-Public Use
  Company Number: JP-JNJFOC-20100902372

PATIENT
  Age: 76 Year
  Sex: Female

DRUGS (8)
  1. REMICADE [Suspect]
     Indication: PUSTULAR PSORIASIS
     Route: 042
  2. REMICADE [Suspect]
     Route: 042
  3. REMICADE [Suspect]
     Route: 042
  4. REMICADE [Suspect]
     Dosage: TOTAL OF 4 INFUSIONS
     Route: 042
  5. CYCLOSPORINE [Suspect]
     Indication: PUSTULAR PSORIASIS
     Route: 048
  6. ETRETINATE [Concomitant]
     Indication: PUSTULAR PSORIASIS
     Route: 048
  7. STEROIDS NOS [Concomitant]
     Indication: PUSTULAR PSORIASIS
     Route: 061
  8. STEROIDS NOS [Concomitant]
     Route: 048

REACTIONS (4)
  - HERPES ZOSTER [None]
  - PEMPHIGOID [None]
  - RETROPERITONEAL ABSCESS [None]
  - STAPHYLOCOCCAL INFECTION [None]
